FAERS Safety Report 16930498 (Version 2)
Quarter: 2019Q4

REPORT INFORMATION
  Report Type: Spontaneous
  Country: US (occurrence: US)
  Receive Date: 20191017
  Receipt Date: 20191025
  Transmission Date: 20200122
  Serious: Yes (Other)
  Sender: FDA-Public Use
  Company Number: US-PFIZER INC-2019444785

PATIENT
  Age: 12 Month
  Sex: Male

DRUGS (2)
  1. DOXYCYCLINE HYCLATE. [Suspect]
     Active Substance: DOXYCYCLINE HYCLATE
     Indication: SCLEROTHERAPY
  2. DOXYCYCLINE HYCLATE. [Suspect]
     Active Substance: DOXYCYCLINE HYCLATE
     Indication: VENOLYMPHATIC MALFORMATION
     Dosage: UNK, DAILY  (RANGING FROM 230 TO 300 MG EACH DAY WITH 760 MG)

REACTIONS (7)
  - Product use issue [Unknown]
  - Administration site inflammation [Recovered/Resolved]
  - Laryngeal nerve dysfunction [Recovered/Resolved]
  - Dysphagia [Recovered/Resolved]
  - Aspiration [Recovered/Resolved]
  - Off label use [Unknown]
  - Product use in unapproved indication [Unknown]
